FAERS Safety Report 6773290-8 (Version None)
Quarter: 2010Q2

REPORT INFORMATION
  Report Type: 
  Country: None (occurrence: None)
  Receive Date: 20100611
  Receipt Date: 20100524
  Transmission Date: 20101027
  Serious: Yes (Other)
  Sender: FDA-Public Use
  Company Number: B0658177A

PATIENT
  Age: 61 Year
  Sex: Female

DRUGS (2)
  1. CEFTAZIDIME SODIUM [Suspect]
     Indication: ENDOPHTHALMITIS
     Dosage: INTRAOCULAR
     Route: 031
  2. VANCOMYCIN [Suspect]
     Indication: ENDOPHTHALMITIS
     Dosage: INTRAOCULAR
     Route: 031

REACTIONS (7)
  - EYE INFLAMMATION [None]
  - MACULAR OEDEMA [None]
  - RETINAL DEPOSITS [None]
  - RETINAL HAEMORRHAGE [None]
  - RETINAL NEOVASCULARISATION [None]
  - RETINAL OEDEMA [None]
  - RETINAL VEIN OCCLUSION [None]
